FAERS Safety Report 10968642 (Version 1)
Quarter: 2015Q1

REPORT INFORMATION
  Report Type: Report from Study
  Country: MX (occurrence: MX)
  Receive Date: 20150330
  Receipt Date: 20150330
  Transmission Date: 20150721
  Serious: Yes (Death, Hospitalization)
  Sender: FDA-Public Use
  Company Number: PHHY2015MX036905

PATIENT
  Age: 45 Year
  Sex: Female

DRUGS (1)
  1. NILOTINIB [Suspect]
     Active Substance: NILOTINIB
     Indication: CHRONIC MYELOID LEUKAEMIA
     Dosage: 800 MG, QD
     Route: 065
     Dates: start: 20141016, end: 20150304

REACTIONS (2)
  - Death [Fatal]
  - Chronic myeloid leukaemia transformation [Not Recovered/Not Resolved]

NARRATIVE: CASE EVENT DATE: 20150304
